FAERS Safety Report 8519888-8 (Version None)
Quarter: 2012Q3

REPORT INFORMATION
  Report Type: 
  Country: None (occurrence: None)
  Receive Date: 20120719
  Receipt Date: 20120710
  Transmission Date: 20120928
  Serious: No
  Sender: FDA-Public Use
  Company Number: US-BIOGENIDEC-2012BI020940

PATIENT
  Age: 23 Year
  Sex: Female

DRUGS (1)
  1. AVONEX [Suspect]
     Indication: MULTIPLE SCLEROSIS
     Route: 030
     Dates: start: 20120611, end: 20120706

REACTIONS (9)
  - COUGH [None]
  - PRURITUS [None]
  - HYPERSENSITIVITY [None]
  - THROAT TIGHTNESS [None]
  - PRURITUS GENERALISED [None]
  - HEADACHE [None]
  - ASTHENIA [None]
  - CHEST DISCOMFORT [None]
  - BURNING SENSATION [None]
